FAERS Safety Report 4891840-3 (Version None)
Quarter: 2006Q1

REPORT INFORMATION
  Report Type: 
  Country: None (occurrence: None)
  Receive Date: 20060123
  Receipt Date: 20060106
  Transmission Date: 20060701
  Serious: Yes (Hospitalization)
  Sender: FDA-Public Use
  Company Number: 230063M05FRA

PATIENT
  Age: 59 Year
  Sex: Female
  Weight: 82 kg

DRUGS (1)
  1. REBIF [Suspect]
     Indication: MULTIPLE SCLEROSIS
     Dosage: 1 DOSAGE FORMS, 3 IN 1 WEEKS, SUBCUTANEOUS
     Route: 058
     Dates: start: 20020703, end: 20050110

REACTIONS (6)
  - ARTHRALGIA [None]
  - COLITIS ULCERATIVE [None]
  - EPISCLERITIS [None]
  - ERYTHEMA NODOSUM [None]
  - GASTROINTESTINAL DISORDER [None]
  - NODULE [None]
